FAERS Safety Report 4682759-1 (Version None)
Quarter: 2005Q2

REPORT INFORMATION
  Report Type: 
  Country: None (occurrence: None)
  Receive Date: 20050606
  Receipt Date: 20041102
  Transmission Date: 20051028
  Serious: Yes (Other)
  Sender: FDA-Public Use
  Company Number: PHFR2004GB04103

PATIENT
  Age: 55 Year
  Sex: Female

DRUGS (1)
  1. ESTRADERM [Suspect]
     Indication: MENOPAUSE
     Route: 062

REACTIONS (3)
  - APPLICATION SITE ECZEMA [None]
  - ECZEMA WEEPING [None]
  - RASH GENERALISED [None]
